FAERS Safety Report 4697112-4 (Version None)
Quarter: 2005Q2

REPORT INFORMATION
  Report Type: 
  Country: None (occurrence: None)
  Receive Date: 20050622
  Receipt Date: 20050615
  Transmission Date: 20051028
  Serious: Yes (Other)
  Sender: FDA-Public Use
  Company Number: FR-ROCHE-407783

PATIENT
  Age: 57 Year
  Sex: Female

DRUGS (6)
  1. PEG-INTERFERON ALFA 2A (RO 25-8310) [Suspect]
     Route: 058
     Dates: start: 20041202
  2. RIBAVIRIN [Suspect]
     Route: 048
     Dates: start: 20041202
  3. ARTIFICIAL TEARS [Concomitant]
     Dates: start: 20050127
  4. DEXERYL [Concomitant]
     Indication: DRY SKIN
     Dates: start: 20050127
  5. STILNOX [Concomitant]
     Indication: INSOMNIA
     Dates: start: 20050215
  6. DAFALGAN [Concomitant]
     Indication: MYALGIA
     Dates: start: 20050127

REACTIONS (2)
  - HAEMORRHAGE [None]
  - VISUAL ACUITY REDUCED [None]
